FAERS Safety Report 24029651 (Version 1)
Quarter: 2024Q2

REPORT INFORMATION
  Report Type: Report from Study
  Country: JP (occurrence: JP)
  Receive Date: 20240628
  Receipt Date: 20240628
  Transmission Date: 20240716
  Serious: Yes (Death)
  Sender: FDA-Public Use
  Company Number: JP-DSJP-DSJ-2023-102948

PATIENT
  Age: 43 Year
  Sex: Female

DRUGS (2)
  1. QUIZARTINIB [Suspect]
     Active Substance: QUIZARTINIB
     Indication: Acute myeloid leukaemia
     Dosage: 26.5 MG, QD
     Route: 048
     Dates: start: 20220806, end: 20230104
  2. QUIZARTINIB [Suspect]
     Active Substance: QUIZARTINIB
     Dosage: UNK UNK, QD
     Route: 048
     Dates: start: 20230303, end: 20230410

REACTIONS (3)
  - Platelet count decreased [Fatal]
  - Neutrophil count decreased [Fatal]
  - Anaemia [Recovering/Resolving]

NARRATIVE: CASE EVENT DATE: 20220824
